FAERS Safety Report 13437033 (Version 1)
Quarter: 2017Q2

REPORT INFORMATION
  Report Type: Spontaneous
  Country: US (occurrence: US)
  Receive Date: 20170413
  Receipt Date: 20170413
  Transmission Date: 20170830
  Serious: No
  Sender: FDA-Public Use
  Company Number: US-SA-2016SA070385

PATIENT
  Age: 60 Year
  Sex: Female

DRUGS (1)
  1. ALLEGRA-D [Suspect]
     Active Substance: FEXOFENADINE\PSEUDOEPHEDRINE
     Indication: MIDDLE EAR EFFUSION
     Route: 048
     Dates: start: 20160204

REACTIONS (2)
  - Fatigue [Unknown]
  - Somnolence [Unknown]
